FAERS Safety Report 6425241-3 (Version None)
Quarter: 2009Q4

REPORT INFORMATION
  Report Type: 
  Country: None (occurrence: None)
  Receive Date: 20091103
  Receipt Date: 20091021
  Transmission Date: 20100525
  Serious: Yes (Other)
  Sender: FDA-Public Use
  Company Number: US-BRISTOL-MYERS SQUIBB COMPANY-14832760

PATIENT
  Age: 50 Year
  Sex: Male

DRUGS (2)
  1. ONGLYZA [Suspect]
  2. ACTOS [Concomitant]

REACTIONS (2)
  - HALLUCINATION [None]
  - PARANOIA [None]
